FAERS Safety Report 4500439-X (Version None)
Quarter: 2004Q4

REPORT INFORMATION
  Report Type: 
  Country: None (occurrence: None)
  Receive Date: 20040928
  Receipt Date: 20040723
  Transmission Date: 20050328
  Serious: No
  Sender: FDA-Public Use
  Company Number: 04P-163-0268385-00

PATIENT
  Age: 77 Year
  Sex: Female

DRUGS (9)
  1. HUMIRA [Suspect]
     Indication: RHEUMATOID ARTHRITIS
     Dosage: 40 MG, 1IN 2 WK, SUBCUTANEOUS
     Route: 058
     Dates: start: 20040101, end: 20040101
  2. PREDNISONE [Concomitant]
  3. LEXAPRO [Concomitant]
  4. ACETYLSALICYLIC ACID [Concomitant]
  5. FUROSEMIDE [Concomitant]
  6. POTASSIUM [Concomitant]
  7. PYRIDOXINE HYDROCHLORIDE [Concomitant]
  8. CALCIUM [Concomitant]
  9. MULTI-VITAMINS [Concomitant]

REACTIONS (1)
  - PALPITATIONS [None]
